FAERS Safety Report 8759215 (Version 1)
Quarter: 2012Q4

REPORT INFORMATION
  Report Type: 
  Country: US (occurrence: US)
  Receive Date: 20120829
  Receipt Date: 20120829
  Transmission Date: 20130627
  Serious: Yes (Other)
  Sender: FDA-Public Use
  Company Number: US-WATSON-2012-14744

PATIENT
  Sex: Male
  Weight: 104 kg

DRUGS (2)
  1. ANDRODERM (WATSON LABORATORIES) [Suspect]
     Indication: BLOOD TESTOSTERONE DECREASED
     Dosage: 1 patch qd
     Route: 062
     Dates: start: 2010, end: 201202
  2. STATIN [Concomitant]
     Indication: BLOOD CHOLESTEROL INCREASED
     Dosage: 1 pill qd
     Route: 048

REACTIONS (1)
  - Breast cancer stage II [Recovering/Resolving]
